FAERS Safety Report 6840101-1 (Version None)
Quarter: 2010Q3

REPORT INFORMATION
  Report Type: 
  Country: None (occurrence: None)
  Receive Date: 20100714
  Receipt Date: 20100703
  Transmission Date: 20110219
  Serious: Yes (Hospitalization)
  Sender: FDA-Public Use
  Company Number: US-JNJFOC-20100702020

PATIENT
  Sex: Male
  Weight: 40.6 kg

DRUGS (2)
  1. REMICADE [Suspect]
     Indication: INFLAMMATORY BOWEL DISEASE
  2. CIMZIA [Concomitant]

REACTIONS (1)
  - SMALL INTESTINAL OBSTRUCTION [None]
